FAERS Safety Report 6432504-4 (Version None)
Quarter: 2009Q4

REPORT INFORMATION
  Report Type: 
  Country: None (occurrence: None)
  Receive Date: 20091105
  Receipt Date: 20091026
  Transmission Date: 20100525
  Serious: Yes (Hospitalization)
  Sender: FDA-Public Use
  Company Number: DSA_41895_2009

PATIENT
  Age: 12 Year
  Sex: Male

DRUGS (8)
  1. TETRABENAZINE (TETRABENAZINE) [Suspect]
     Indication: DYSTONIA
     Dosage: (12.5 MG QD BID ORAL), (12.5 MG TID ORAL)
     Route: 048
  2. TETRABENAZINE (TETRABENAZINE) [Suspect]
     Indication: DYSTONIA
     Dosage: (12.5 MG QD BID ORAL), (12.5 MG TID ORAL)
     Route: 048
  3. FIBRE, DIETARY [Concomitant]
  4. LIORESAL [Concomitant]
  5. NEURONTIN [Concomitant]
  6. NEXIUM [Concomitant]
  7. RIVOTRIL [Concomitant]
  8. FORLAX [Concomitant]

REACTIONS (1)
  - ABDOMINAL PAIN [None]
